FAERS Safety Report 12503542 (Version 1)
Quarter: 2016Q2

REPORT INFORMATION
  Report Type: Spontaneous
  Country: US (occurrence: None)
  Receive Date: 20160627
  Receipt Date: 20160627
  Transmission Date: 20160815
  Serious: Yes (Hospitalization)
  Sender: FDA-Public Use
  Company Number: None

PATIENT
  Age: 71 Year
  Sex: Female
  Weight: 100.7 kg

DRUGS (8)
  1. DIOVAN [Concomitant]
     Active Substance: VALSARTAN
  2. ELIQUIS [Suspect]
     Active Substance: APIXABAN
     Indication: ATRIAL FIBRILLATION
     Route: 048
  3. NAPROXEN, 500 MG [Suspect]
     Active Substance: NAPROXEN
     Indication: OSTEOARTHRITIS
     Route: 048
  4. BACLOFEN. [Concomitant]
     Active Substance: BACLOFEN
  5. MULTAQ [Concomitant]
     Active Substance: DRONEDARONE
  6. MVI [Concomitant]
     Active Substance: VITAMINS
  7. LOPRESSOR [Concomitant]
     Active Substance: METOPROLOL TARTRATE
  8. KLOR-CON [Concomitant]
     Active Substance: POTASSIUM CHLORIDE

REACTIONS (8)
  - Abdominal pain [None]
  - Haematemesis [None]
  - Dizziness [None]
  - Haemoglobin decreased [None]
  - Gastrointestinal haemorrhage [None]
  - Chest discomfort [None]
  - Headache [None]
  - Pallor [None]

NARRATIVE: CASE EVENT DATE: 20160623
